FAERS Safety Report 10482143 (Version 1)
Quarter: 2014Q3

REPORT INFORMATION
  Report Type: Report from Study
  Country: CA (occurrence: CA)
  Receive Date: 20140929
  Receipt Date: 20140929
  Transmission Date: 20150326
  Serious: Yes (Other)
  Sender: FDA-Public Use
  Company Number: CA-BRISTOL-MYERS SQUIBB COMPANY-21436431

PATIENT
  Age: 65 Year
  Sex: Male

DRUGS (8)
  1. LIPITOR [Concomitant]
     Active Substance: ATORVASTATIN CALCIUM
  2. FOLIC ACID. [Concomitant]
     Active Substance: FOLIC ACID
  3. CARBOCAL D [Concomitant]
     Active Substance: CALCIUM\VITAMIN D
  4. METHOTREXATE [Concomitant]
     Active Substance: METHOTREXATE
  5. NORVASC [Concomitant]
     Active Substance: AMLODIPINE BESYLATE
  6. VITALUX [Concomitant]
  7. SYNTHROID [Concomitant]
     Active Substance: LEVOTHYROXINE SODIUM
  8. ORENCIA [Suspect]
     Active Substance: ABATACEPT
     Indication: RHEUMATOID ARTHRITIS
     Route: 042
     Dates: start: 20140402

REACTIONS (1)
  - Dementia Alzheimer^s type [Not Recovered/Not Resolved]

NARRATIVE: CASE EVENT DATE: 2014
